FAERS Safety Report 7510771-3 (Version None)
Quarter: 2011Q2

REPORT INFORMATION
  Report Type: 
  Country: None (occurrence: None)
  Receive Date: 20110530
  Receipt Date: 20070126
  Transmission Date: 20111010
  Serious: Yes (Other)
  Sender: FDA-Public Use
  Company Number: PHHO2007JP02073

PATIENT
  Sex: Female

DRUGS (5)
  1. RHYTHMY [Concomitant]
  2. DEPAKENE [Concomitant]
     Indication: EPILEPSY
  3. DIOVAN [Suspect]
     Indication: HYPERTENSION
     Dates: start: 20021216
  4. SYMMETREL [Concomitant]
  5. LOXONIN [Concomitant]
     Indication: HEADACHE

REACTIONS (1)
  - EPILEPSY [None]
